FAERS Safety Report 14706469 (Version 10)
Quarter: 2019Q1

REPORT INFORMATION
  Report Type: Spontaneous
  Country: FR (occurrence: FR)
  Receive Date: 20180402
  Receipt Date: 20190109
  Transmission Date: 20190417
  Serious: Yes (Other)
  Sender: FDA-Public Use
  Company Number: FR-GILEAD-2018-0329816

PATIENT
  Age: 67 Year
  Sex: Female

DRUGS (21)
  1. RITUXIMAB. [Suspect]
     Active Substance: RITUXIMAB
     Indication: CHRONIC LYMPHOCYTIC LEUKAEMIA
     Dosage: DOSAGE FORM: UNSPECIFIED
     Route: 048
  2. NIVOLUMAB [Suspect]
     Active Substance: NIVOLUMAB
     Dosage: UNK
     Route: 065
  3. RITUXIMAB. [Suspect]
     Active Substance: RITUXIMAB
     Indication: CHRONIC LYMPHOCYTIC LEUKAEMIA
     Dosage: UNK
     Route: 048
     Dates: start: 2013
  4. ZYDELIG [Suspect]
     Active Substance: IDELALISIB
     Dosage: DOSAGE FORM: UNSPECIFIED
     Route: 065
  5. VENETOCLAX. [Suspect]
     Active Substance: VENETOCLAX
     Indication: CHRONIC LYMPHOCYTIC LEUKAEMIA
     Dosage: UNK
     Route: 048
  6. METHOTREXATE. [Suspect]
     Active Substance: METHOTREXATE
     Indication: CHRONIC LYMPHOCYTIC LEUKAEMIA
     Dosage: UNK
     Route: 065
  7. NIVOLUMAB [Suspect]
     Active Substance: NIVOLUMAB
     Dosage: DOSAGE FORM: UNSPECIFIED
     Route: 065
  8. NIVOLUMAB [Suspect]
     Active Substance: NIVOLUMAB
     Dosage: DOSAGE FORM: UNSPECIFIED
     Route: 065
     Dates: start: 201707
  9. BENDAMUSTINE HYDROCHLORIDE. [Suspect]
     Active Substance: BENDAMUSTINE HYDROCHLORIDE
     Indication: CHRONIC LYMPHOCYTIC LEUKAEMIA
     Dosage: UNK UNK, CYCLICAL
     Route: 042
     Dates: start: 201608
  10. ZYDELIG [Suspect]
     Active Substance: IDELALISIB
     Indication: CHRONIC LYMPHOCYTIC LEUKAEMIA
     Dosage: UNK
     Route: 065
  11. VENETOCLAX. [Suspect]
     Active Substance: VENETOCLAX
     Dosage: DOSAGE FORM: UNSPECIFIED
     Route: 048
  12. VENETOCLAX. [Suspect]
     Active Substance: VENETOCLAX
     Dosage: UNK
     Route: 048
  13. VENETOCLAX. [Suspect]
     Active Substance: VENETOCLAX
     Dosage: UNK
     Route: 048
  14. METHOTREXATE. [Suspect]
     Active Substance: METHOTREXATE
     Dosage: DOSAGE FORM: UNSPECIFIED
     Route: 065
  15. NIVOLUMAB [Suspect]
     Active Substance: NIVOLUMAB
     Indication: CHRONIC LYMPHOCYTIC LEUKAEMIA
     Dosage: UNK
     Route: 065
  16. NIVOLUMAB [Suspect]
     Active Substance: NIVOLUMAB
     Dosage: UNK
     Route: 065
  17. RITUXIMAB. [Suspect]
     Active Substance: RITUXIMAB
     Indication: PRODUCT USED FOR UNKNOWN INDICATION
     Dosage: DOSAGE FORM: UNSPECIFIED
     Route: 048
     Dates: start: 201608
  18. IMBRUVICA [Suspect]
     Active Substance: IBRUTINIB
     Dosage: UNK
     Route: 048
     Dates: start: 201403
  19. IMBRUVICA [Suspect]
     Active Substance: IBRUTINIB
     Indication: CHRONIC LYMPHOCYTIC LEUKAEMIA
     Dosage: UNK
     Route: 048
     Dates: start: 201711, end: 201711
  20. VENETOCLAX. [Suspect]
     Active Substance: VENETOCLAX
     Route: 048
     Dates: start: 201608
  21. NIVOLUMAB [Suspect]
     Active Substance: NIVOLUMAB
     Dosage: DOSAGE FORM: UNSPECIFIED
     Route: 065

REACTIONS (3)
  - Chronic lymphocytic leukaemia [Unknown]
  - Non-small cell lung cancer [Unknown]
  - Nonspecific reaction [Unknown]

NARRATIVE: CASE EVENT DATE: 201703
